FAERS Safety Report 6545582-9 (Version None)
Quarter: 2010Q1

REPORT INFORMATION
  Report Type: 
  Country: None (occurrence: None)
  Receive Date: 20100121
  Receipt Date: 20100111
  Transmission Date: 20100710
  Serious: Yes (Other)
  Sender: FDA-Public Use
  Company Number: TR-PFIZER INC-2010004371

PATIENT
  Age: 46 Year
  Sex: Male

DRUGS (1)
  1. LOPID [Suspect]
     Indication: HYPERLIPIDAEMIA
     Dosage: 600 MG, 2X/DAY
     Route: 048
     Dates: start: 20080301

REACTIONS (1)
  - ERYTHEMA MULTIFORME [None]
